FAERS Safety Report 9540476 (Version 1)
Quarter: 2013Q3

REPORT INFORMATION
  Report Type: Spontaneous
  Country: GB (occurrence: GB)
  Receive Date: 20130920
  Receipt Date: 20130920
  Transmission Date: 20140515
  Serious: Yes (Other)
  Sender: FDA-Public Use
  Company Number: PHHY2013GB101593

PATIENT
  Age: 93 Year
  Sex: Female

DRUGS (1)
  1. GALANTAMINE [Suspect]
     Dosage: 48 MG, DAILY (2 DIFFERENT BRANDS OF GALANTAMINE XL 24MG)
     Route: 048
     Dates: start: 20130826, end: 20130830

REACTIONS (2)
  - Myoclonus [Recovered/Resolved]
  - Accidental overdose [Unknown]
